FAERS Safety Report 6331608-4 (Version None)
Quarter: 2009Q3

REPORT INFORMATION
  Report Type: 
  Country: None (occurrence: None)
  Receive Date: 20090827
  Receipt Date: 20090817
  Transmission Date: 20100115
  Serious: Yes (Other)
  Sender: FDA-Public Use
  Company Number: PHHY2009GB32861

PATIENT
  Sex: Male
  Weight: 96 kg

DRUGS (6)
  1. CLOZARIL [Suspect]
     Indication: SCHIZOPHRENIA
     Dosage: 375 MG DAILY IN DIVIDED DOSES
     Route: 048
     Dates: start: 20051013
  2. CLOZARIL [Suspect]
     Dosage: 300 MG, QD
  3. HYOSCINE HBR HYT [Concomitant]
     Dosage: 150 UG, UNK
     Route: 048
  4. OMEPRAZOLE [Concomitant]
     Indication: DYSPEPSIA
     Dosage: 300 MG NOCTE
     Route: 048
  5. SENNA [Concomitant]
     Indication: CONSTIPATION
     Dosage: 7.5 MG, UNK
     Route: 048
  6. NICOTINE [Concomitant]
     Dosage: 14 MG, UNK
     Route: 062

REACTIONS (3)
  - ANTIPSYCHOTIC DRUG LEVEL INCREASED [None]
  - CONDITION AGGRAVATED [None]
  - HYPOTHYROIDISM [None]
